FAERS Safety Report 10259897 (Version 1)
Quarter: 2014Q2

REPORT INFORMATION
  Report Type: Spontaneous
  Country: RU (occurrence: RU)
  Receive Date: 20140625
  Receipt Date: 20140625
  Transmission Date: 20141212
  Serious: Yes (Hospitalization)
  Sender: FDA-Public Use
  Company Number: RU-VIIV HEALTHCARE LIMITED-B1006424A

PATIENT
  Sex: Male

DRUGS (7)
  1. LAMIVUDINE-HIV [Suspect]
     Indication: HIV INFECTION
     Route: 065
     Dates: start: 201404
  2. STAVUDINE [Suspect]
     Indication: HIV INFECTION
     Route: 065
     Dates: start: 201404
  3. STOCRIN [Suspect]
     Indication: HIV INFECTION
     Route: 065
     Dates: start: 201404
  4. ISONIAZID [Concomitant]
  5. AMIKACIN [Concomitant]
  6. LEVOFLOXACIN [Concomitant]
  7. BISEPTOL [Concomitant]
     Dosage: 1TAB IN THE MORNING

REACTIONS (9)
  - Pulmonary tuberculosis [Unknown]
  - Respiratory disorder [Not Recovered/Not Resolved]
  - Oropharyngeal pain [Not Recovered/Not Resolved]
  - Sensation of foreign body [Not Recovered/Not Resolved]
  - Blood pressure increased [Not Recovered/Not Resolved]
  - Asthenia [Unknown]
  - Dyspnoea [Unknown]
  - Body temperature increased [Recovered/Resolved]
  - Chest X-ray abnormal [Unknown]
